FAERS Safety Report 23452748 (Version 1)
Quarter: 2024Q1

REPORT INFORMATION
  Report Type: Spontaneous
  Country: US (occurrence: US)
  Receive Date: 20240129
  Receipt Date: 20240129
  Transmission Date: 20240410
  Serious: No
  Sender: FDA-Public Use
  Company Number: US-SAREPTA THERAPEUTICS INC.-SRP2023-003871

PATIENT
  Age: 6 Year
  Sex: Male
  Weight: 53.35 kg

DRUGS (7)
  1. AMONDYS 45 [Suspect]
     Active Substance: CASIMERSEN
     Indication: Duchenne muscular dystrophy
     Dosage: 700 MILLIGRAM, WEEKLY
     Route: 042
     Dates: start: 20210618, end: 20230927
  2. AMONDYS 45 [Suspect]
     Active Substance: CASIMERSEN
     Dosage: 700 MILLIGRAM, WEEKLY
     Route: 042
     Dates: start: 20231011
  3. ACETAMINOPHEN [Concomitant]
     Active Substance: ACETAMINOPHEN
     Indication: Product used for unknown indication
     Dosage: 160 ML/5ML, Q6H
     Route: 048
     Dates: start: 20220414
  4. CALCIUM CITRATE [Concomitant]
     Active Substance: CALCIUM CITRATE
     Indication: Product used for unknown indication
     Dosage: 250 MILLIGRAM, QD
     Route: 048
     Dates: start: 20220414
  5. CENTRUM KIDS [Concomitant]
     Indication: Product used for unknown indication
     Dosage: 1 DOSAGE FORM, QD
     Route: 048
     Dates: start: 20220414
  6. PREDNISONE [Concomitant]
     Active Substance: PREDNISONE
     Indication: Product used for unknown indication
     Dosage: 10 MILLIGRAM, QD
     Route: 048
  7. VITAMIN D NOS [Concomitant]
     Active Substance: VITAMIN D NOS
     Indication: Product used for unknown indication
     Dosage: 10 MICROGRAM (400 IU), QD
     Route: 048

REACTIONS (2)
  - Intentional dose omission [Unknown]
  - No adverse event [Unknown]

NARRATIVE: CASE EVENT DATE: 20231004
